FAERS Safety Report 13251624 (Version 4)
Quarter: 2017Q3

REPORT INFORMATION
  Report Type: Spontaneous
  Country: PT (occurrence: PT)
  Receive Date: 20170220
  Receipt Date: 20170717
  Transmission Date: 20171127
  Serious: Yes (Other)
  Sender: FDA-Public Use
  Company Number: PT-ROCHE-1894456

PATIENT
  Age: 66 Year
  Sex: Male

DRUGS (2)
  1. ERIVEDGE [Suspect]
     Active Substance: VISMODEGIB
     Indication: BASAL CELL CARCINOMA
     Route: 048
     Dates: start: 20160920
  2. ERIVEDGE [Suspect]
     Active Substance: VISMODEGIB
     Dosage: DOSE REDUCED
     Route: 048

REACTIONS (7)
  - Arthralgia [Recovered/Resolved]
  - Insomnia [Unknown]
  - Dysgeusia [Unknown]
  - Dizziness [Recovered/Resolved]
  - Alanine aminotransferase increased [Recovered/Resolved]
  - Muscle spasms [Recovered/Resolved]
  - Gamma-glutamyltransferase increased [Recovered/Resolved]

NARRATIVE: CASE EVENT DATE: 20160920
